FAERS Safety Report 10219667 (Version 1)
Quarter: 2014Q2

REPORT INFORMATION
  Report Type: Spontaneous
  Country: GB (occurrence: GB)
  Receive Date: 20140605
  Receipt Date: 20140605
  Transmission Date: 20141212
  Serious: Yes (Hospitalization)
  Sender: FDA-Public Use
  Company Number: GB-ACTAVIS-2014-11781

PATIENT
  Age: 91 Year
  Sex: Female

DRUGS (11)
  1. DICLOFENAC (UNKNOWN) [Suspect]
     Indication: ARTHRALGIA
     Dosage: 50 MG, DAILY
     Route: 048
     Dates: end: 20140514
  2. XARELTO [Suspect]
     Indication: ATRIAL FIBRILLATION
     Dosage: 15 MG, DAILY
     Route: 048
     Dates: start: 20140504, end: 20140514
  3. BISOPROLOL [Concomitant]
     Indication: ATRIAL FIBRILLATION
     Dosage: 2.5 MG, DAILY
     Route: 065
     Dates: start: 20140502
  4. CETIRIZINE [Concomitant]
     Indication: PRODUCT USED FOR UNKNOWN INDICATION
     Dosage: 10 MG, DAILY
     Route: 065
  5. CLOPIDOGREL [Concomitant]
     Indication: PRODUCT USED FOR UNKNOWN INDICATION
     Dosage: 75 MG, DAILY
     Route: 065
     Dates: end: 20140502
  6. CODEINE [Concomitant]
     Indication: PRODUCT USED FOR UNKNOWN INDICATION
     Dosage: 30 MG, PRN
     Route: 065
  7. DOXAZOSIN [Concomitant]
     Indication: PRODUCT USED FOR UNKNOWN INDICATION
     Dosage: 1 MG, DAILY
     Route: 065
     Dates: end: 20140502
  8. GAVISCON ADVANCE [Concomitant]
     Indication: DYSPEPSIA
     Dosage: WHEN REQUIRED.
     Route: 065
  9. PARACETAMOL [Concomitant]
     Indication: PRODUCT USED FOR UNKNOWN INDICATION
     Dosage: 1 G, PRN
     Route: 065
  10. POLYVINYL ALCOHOL [Concomitant]
     Indication: PRODUCT USED FOR UNKNOWN INDICATION
     Dosage: WHEN REQUIRED.
     Route: 065
  11. RANITIDINE [Concomitant]
     Indication: PRODUCT USED FOR UNKNOWN INDICATION
     Dosage: 150 MG, BID
     Route: 065

REACTIONS (3)
  - Gastritis [Unknown]
  - Hiatus hernia [Unknown]
  - Faeces discoloured [Unknown]
